FAERS Safety Report 4977884-1 (Version None)
Quarter: 2006Q2

REPORT INFORMATION
  Report Type: 
  Country: None (occurrence: None)
  Receive Date: 20060420
  Receipt Date: 20060407
  Transmission Date: 20061013
  Serious: Yes (Hospitalization)
  Sender: FDA-Public Use
  Company Number: CA-AVENTIS-200612200EU

PATIENT
  Age: 80 Year
  Sex: Male
  Weight: 74 kg

DRUGS (7)
  1. FUROSEMIDE [Suspect]
     Indication: HYPERTENSION
     Route: 048
  2. LISINOPRIL [Suspect]
     Indication: HYPERTENSION
  3. ASPIRIN [Concomitant]
     Indication: ANGIOPATHY
     Route: 048
  4. ASPIRIN [Concomitant]
     Indication: PROPHYLAXIS
     Route: 048
  5. DILTIAZEM HCL [Concomitant]
  6. TERAZOSIN HCL [Concomitant]
  7. CLOPIDOGREL [Concomitant]
     Indication: PROPHYLAXIS
     Route: 048

REACTIONS (4)
  - CEREBROVASCULAR ACCIDENT [None]
  - FATIGUE [None]
  - HAEMODIALYSIS [None]
  - RENAL FAILURE ACUTE [None]
